FAERS Safety Report 17242826 (Version 1)
Quarter: 2020Q1

REPORT INFORMATION
  Report Type: Spontaneous
  Country: US (occurrence: US)
  Receive Date: 20200107
  Receipt Date: 20200107
  Transmission Date: 20200409
  Serious: No
  Sender: FDA-Public Use
  Company Number: US-JNJFOC-20191242368

PATIENT
  Sex: Male
  Weight: 119.4 kg

DRUGS (19)
  1. CLOPIDOGREL [Concomitant]
     Active Substance: CLOPIDOGREL BISULFATE
     Dates: start: 2019
  2. LOSARTAN. [Concomitant]
     Active Substance: LOSARTAN
     Indication: PROPHYLAXIS
     Dates: start: 2017
  3. FISH OIL [Concomitant]
     Active Substance: FISH OIL
  4. NIACIN. [Concomitant]
     Active Substance: NIACIN
  5. INVOKANA [Suspect]
     Active Substance: CANAGLIFLOZIN
     Indication: TYPE 2 DIABETES MELLITUS
     Route: 048
     Dates: start: 2015
  6. TRULICITY [Concomitant]
     Active Substance: DULAGLUTIDE
     Indication: TYPE 2 DIABETES MELLITUS
     Route: 065
  7. SPIRONOLACTONE. [Concomitant]
     Active Substance: SPIRONOLACTONE
     Indication: FLUID RETENTION
     Dates: start: 2018
  8. VITAMIN B12 [Concomitant]
     Active Substance: CYANOCOBALAMIN
  9. COREG CR [Concomitant]
     Active Substance: CARVEDILOL PHOSPHATE
     Indication: BLOOD CHOLESTEROL ABNORMAL
  10. BUMETIDINE [Concomitant]
     Indication: DIURETIC THERAPY
     Route: 065
     Dates: start: 2012
  11. GLIMEPIRIDE. [Concomitant]
     Active Substance: GLIMEPIRIDE
     Indication: TYPE 2 DIABETES MELLITUS
     Dates: start: 2013
  12. PANTOPRAZOLE [Concomitant]
     Active Substance: PANTOPRAZOLE
     Dates: start: 2017
  13. VYTORIN [Concomitant]
     Active Substance: EZETIMIBE\SIMVASTATIN
     Indication: BLOOD CHOLESTEROL ABNORMAL
     Dosage: 5/40 MG/ -/ 10/80 MG
     Dates: start: 2013
  14. LYRICA [Concomitant]
     Active Substance: PREGABALIN
     Indication: NEUROPATHY PERIPHERAL
     Dates: start: 2012
  15. FOLIC ACID. [Concomitant]
     Active Substance: FOLIC ACID
  16. METFORMIN [Concomitant]
     Active Substance: METFORMIN HYDROCHLORIDE
     Indication: TYPE 2 DIABETES MELLITUS
     Dates: start: 201907
  17. JANUMET [Concomitant]
     Active Substance: METFORMIN HYDROCHLORIDE\SITAGLIPTIN PHOSPHATE
     Dates: end: 201907
  18. ANORO ELLIPTA [Concomitant]
     Active Substance: UMECLIDINIUM BROMIDE\VILANTEROL TRIFENATATE
     Indication: LUNG DISORDER
     Dates: start: 2017
  19. ASPRIN [Concomitant]
     Active Substance: ASPIRIN
     Indication: ANTICOAGULANT THERAPY

REACTIONS (1)
  - Glycosylated haemoglobin increased [Not Recovered/Not Resolved]
